FAERS Safety Report 15229355 (Version 5)
Quarter: 2018Q4

REPORT INFORMATION
  Report Type: Spontaneous
  Country: EG (occurrence: EG)
  Receive Date: 20180801
  Receipt Date: 20180927
  Transmission Date: 20190204
  Serious: Yes (Other)
  Sender: FDA-Public Use
  Company Number: EG-BEH-2018093315

PATIENT
  Age: 54 Year
  Sex: Male

DRUGS (1)
  1. ALBAPURE 20 [Suspect]
     Active Substance: ALBUMIN HUMAN
     Indication: BLOOD ALBUMIN DECREASED
     Dosage: 200 G/L, QD
     Route: 042
     Dates: start: 20180210, end: 20180212

REACTIONS (2)
  - Blood albumin decreased [Unknown]
  - Drug ineffective [Unknown]

NARRATIVE: CASE EVENT DATE: 20180212
